FAERS Safety Report 21303492 (Version 1)
Quarter: 2022Q3

REPORT INFORMATION
  Report Type: Spontaneous
  Country: MX (occurrence: MX)
  Receive Date: 20220907
  Receipt Date: 20220907
  Transmission Date: 20221027
  Serious: Yes (Hospitalization, Other)
  Sender: FDA-Public Use
  Company Number: MX-ALLERGAN, LTD-199806860

PATIENT
  Sex: Female

DRUGS (2)
  1. BETAGAN [Suspect]
     Active Substance: LEVOBUNOLOL HYDROCHLORIDE
     Indication: Ocular hypertension
     Dosage: 1GTT, UNKNOWN
     Route: 047
  2. ALBUTEROL [Concomitant]
     Active Substance: ALBUTEROL
     Indication: Asthma
     Dosage: AT LEAST ONCE A DAY

REACTIONS (3)
  - Respiratory arrest [Recovered/Resolved]
  - Contraindicated product administered [Unknown]
  - Bronchospasm [Recovered/Resolved]
